FAERS Safety Report 8425962-7 (Version None)
Quarter: 2012Q2

REPORT INFORMATION
  Report Type: 
  Country: None (occurrence: None)
  Receive Date: 20120606
  Receipt Date: 20120606
  Transmission Date: 20120825
  Serious: Yes (Hospitalization)
  Sender: FDA-Public Use
  Company Number: None

PATIENT
  Sex: Female

DRUGS (1)
  1. CYMBALTA [Suspect]
     Dosage: TAKE 1 CAPSULE DAILY
     Dates: start: 20120301, end: 20120501

REACTIONS (1)
  - ATRIAL FIBRILLATION [None]
